FAERS Safety Report 4415115-1 (Version None)
Quarter: 2004Q3

REPORT INFORMATION
  Report Type: 
  Country: None (occurrence: None)
  Receive Date: 20040729
  Receipt Date: 20040517
  Transmission Date: 20050211
  Serious: No
  Sender: FDA-Public Use
  Company Number: US-JNJFOC-20040702110

PATIENT
  Age: 97 Year
  Sex: Female

DRUGS (3)
  1. JUNIOR STRENGTH MOTRIN [Suspect]
     Indication: ARTHRITIS
     Dosage: 50-100 MG QHS PRN
     Dates: start: 20040501, end: 20040501
  2. THYROID MEDICATION (THYROID  HORMONES) [Concomitant]
  3. HEART MEDICATION (CARDIAC THERAPY) [Concomitant]

REACTIONS (1)
  - ABNORMAL DREAMS [None]
